FAERS Safety Report 12329141 (Version 1)
Quarter: 2016Q2

REPORT INFORMATION
  Report Type: Spontaneous
  Country: US (occurrence: US)
  Receive Date: 20160503
  Receipt Date: 20160503
  Transmission Date: 20160815
  Serious: No
  Sender: FDA-Public Use
  Company Number: US-PFIZER INC-2016234500

PATIENT
  Age: 64 Year
  Sex: Female

DRUGS (15)
  1. VITAMIN B12 [Concomitant]
     Active Substance: CYANOCOBALAMIN
  2. METHOTREXATE [Concomitant]
     Active Substance: METHOTREXATE
  3. SALMON OIL [Concomitant]
     Active Substance: FISH OIL
  4. NAPROXEN. [Concomitant]
     Active Substance: NAPROXEN
  5. LAMOTRIGINE. [Concomitant]
     Active Substance: LAMOTRIGINE
  6. VITAMIN C [Concomitant]
     Active Substance: ASCORBIC ACID
  7. CALCITRATE [Concomitant]
     Active Substance: CALCIUM CITRATE
  8. FISH OIL [Concomitant]
     Active Substance: FISH OIL
  9. XELJANZ [Suspect]
     Active Substance: TOFACITINIB CITRATE
     Indication: RHEUMATOID ARTHRITIS
     Dosage: 5 MG, 2X/DAY
     Route: 048
  10. LYRICA [Concomitant]
     Active Substance: PREGABALIN
  11. FOSAMAX [Concomitant]
     Active Substance: ALENDRONATE SODIUM
  12. FOLIC ACID. [Concomitant]
     Active Substance: FOLIC ACID
  13. PREDNISONE. [Concomitant]
     Active Substance: PREDNISONE
  14. VITAMIN E [Concomitant]
     Active Substance: .ALPHA.-TOCOPHEROL
  15. CITRACAL [Concomitant]
     Active Substance: CALCIUM CITRATE

REACTIONS (2)
  - Pain in extremity [Unknown]
  - Pain [Unknown]
